FAERS Safety Report 18161074 (Version 3)
Quarter: 2020Q4

REPORT INFORMATION
  Report Type: Spontaneous
  Country: US (occurrence: US)
  Receive Date: 20200817
  Receipt Date: 20201015
  Transmission Date: 20210113
  Serious: Yes (Other)
  Sender: FDA-Public Use
  Company Number: US-GILEAD-2020-0490091

PATIENT
  Sex: Male
  Weight: 95.7 kg

DRUGS (82)
  1. ALPRAZOLAM. [Concomitant]
     Active Substance: ALPRAZOLAM
  2. CLINDAMYCIN HCL [Concomitant]
     Active Substance: CLINDAMYCIN HYDROCHLORIDE
  3. DEXTROAMPHETAMINE [DEXAMFETAMINE] [Concomitant]
     Active Substance: DEXTROAMPHETAMINE
  4. DULERA [Concomitant]
     Active Substance: FORMOTEROL FUMARATE DIHYDRATE\MOMETASONE FUROATE
  5. FLONASE ALLERGY RELIEF [Concomitant]
     Active Substance: FLUTICASONE PROPIONATE
  6. LEVOFLOXACIN. [Concomitant]
     Active Substance: LEVOFLOXACIN
  7. OXYCODONE AND ACETAMINOPHEN [Concomitant]
     Active Substance: ACETAMINOPHEN\OXYCODONE HYDROCHLORIDE
  8. PRILOSEC [Concomitant]
     Active Substance: OMEPRAZOLE MAGNESIUM
  9. SULFAMETHOXAZOLE [Concomitant]
     Active Substance: SULFAMETHOXAZOLE
  10. TRICOR [ADENOSINE] [Concomitant]
     Active Substance: ADENOSINE
  11. VALACYCLOVIR HCL [Concomitant]
     Active Substance: VALACYCLOVIR HYDROCHLORIDE
  12. VIREAD [Suspect]
     Active Substance: TENOFOVIR DISOPROXIL FUMARATE
     Indication: HIV INFECTION
     Dosage: UNK
     Route: 048
     Dates: start: 2002
  13. TRIUMEQ [Concomitant]
     Active Substance: ABACAVIR SULFATE\DOLUTEGRAVIR SODIUM\LAMIVUDINE
     Indication: HIV INFECTION
     Dosage: UNK
     Route: 065
     Dates: start: 201508, end: 201509
  14. AMBIEN [Concomitant]
     Active Substance: ZOLPIDEM TARTRATE
  15. KLOR-CON [Concomitant]
     Active Substance: POTASSIUM CHLORIDE
  16. MORPHINE SULF [Concomitant]
     Active Substance: MORPHINE SULFATE
  17. NASONEX [Concomitant]
     Active Substance: MOMETASONE FUROATE
  18. OXYCODONE HYDROCHLORIDE. [Concomitant]
     Active Substance: OXYCODONE HYDROCHLORIDE
  19. PRAMIPEXOLE. [Concomitant]
     Active Substance: PRAMIPEXOLE
  20. ROZEREM [Concomitant]
     Active Substance: RAMELTEON
  21. TRUVADA [Suspect]
     Active Substance: EMTRICITABINE\TENOFOVIR DISOPROXIL FUMARATE
     Indication: HIV INFECTION
     Dosage: UNK
     Route: 048
     Dates: start: 2002
  22. LEXIVA [Concomitant]
     Active Substance: FOSAMPRENAVIR CALCIUM
     Indication: HIV INFECTION
  23. ADDERALL [Concomitant]
     Active Substance: AMPHETAMINE ASPARTATE\AMPHETAMINE SULFATE\DEXTROAMPHETAMINE SACCHARATE\DEXTROAMPHETAMINE SULFATE
  24. AMOX [AMOXICILLIN] [Concomitant]
     Active Substance: AMOXICILLIN
  25. CYMBALTA [Concomitant]
     Active Substance: DULOXETINE HYDROCHLORIDE
  26. DEXAMETHASONE. [Concomitant]
     Active Substance: DEXAMETHASONE
  27. HYOSCYAMINE. [Concomitant]
     Active Substance: HYOSCYAMINE
  28. MONTELUKAST [Concomitant]
     Active Substance: MONTELUKAST SODIUM
  29. NORCO [Concomitant]
     Active Substance: ACETAMINOPHEN\HYDROCODONE BITARTRATE
  30. NYSTATIN. [Concomitant]
     Active Substance: NYSTATIN
  31. POTASSIUM [Concomitant]
     Active Substance: POTASSIUM
  32. ROPINIROLE HCL [Concomitant]
     Active Substance: ROPINIROLE HYDROCHLORIDE
  33. TIZANIDINE HCL [Concomitant]
     Active Substance: TIZANIDINE HYDROCHLORIDE
  34. ZALEPLON. [Concomitant]
     Active Substance: ZALEPLON
  35. ACYCLOVIR [ACICLOVIR SODIUM] [Concomitant]
     Active Substance: ACYCLOVIR
  36. AUGMENTIN [Concomitant]
     Active Substance: AMOXICILLIN\CLAVULANATE POTASSIUM
  37. CHANTIX [Concomitant]
     Active Substance: VARENICLINE TARTRATE
  38. DEPO-TESTOSTERONE [Concomitant]
     Active Substance: TESTOSTERONE CYPIONATE
  39. FLUTICASONE. [Concomitant]
     Active Substance: FLUTICASONE
  40. HYDROCORTISONE. [Concomitant]
     Active Substance: HYDROCORTISONE
  41. NORVIR [Concomitant]
     Active Substance: RITONAVIR
     Indication: HIV INFECTION
  42. PREDNISONE. [Concomitant]
     Active Substance: PREDNISONE
  43. PRAVASTATIN. [Concomitant]
     Active Substance: PRAVASTATIN
  44. XANAX [Concomitant]
     Active Substance: ALPRAZOLAM
  45. ZELTA [LEVETIRACETAM] [Concomitant]
  46. ATRIPLA [Suspect]
     Active Substance: EFAVIRENZ\EMTRICITABINE\TENOFOVIR DISOPROXIL FUMARATE
     Indication: PRODUCT USED FOR UNKNOWN INDICATION
     Dosage: UNK
     Route: 048
     Dates: start: 2002
  47. AMOXICILLIN. [Concomitant]
     Active Substance: AMOXICILLIN
  48. DEXTROAMPHET SACCHARAT, AMPHET ASPARTATE, DEXTROAMPHET SULFATE AND AMPHET SULFAT [Concomitant]
     Active Substance: AMPHETAMINE ASPARTATE\AMPHETAMINE SULFATE\DEXTROAMPHETAMINE SACCHARATE\DEXTROAMPHETAMINE SULFATE
  49. AZITHROMYCIN ANHYDROUS. [Concomitant]
     Active Substance: AZITHROMYCIN ANHYDROUS
  50. BENZONATATE. [Concomitant]
     Active Substance: BENZONATATE
  51. DULOXETINE HCL [Concomitant]
     Active Substance: DULOXETINE HYDROCHLORIDE
  52. FENOFIBRATE. [Concomitant]
     Active Substance: FENOFIBRATE
  53. MELOXICAM. [Concomitant]
     Active Substance: MELOXICAM
  54. NASACORT [Concomitant]
     Active Substance: TRIAMCINOLONE ACETONIDE
  55. PROVENTIL HFA [Concomitant]
     Active Substance: ALBUTEROL SULFATE
  56. WARFARIN SODIUM. [Concomitant]
     Active Substance: WARFARIN SODIUM
  57. VIREAD [Suspect]
     Active Substance: TENOFOVIR DISOPROXIL FUMARATE
     Dosage: UNK
     Route: 048
     Dates: start: 2006, end: 2010
  58. ALENDRONATE SODIUM. [Concomitant]
     Active Substance: ALENDRONATE SODIUM
  59. ARNUITY ELLIPTA [Concomitant]
     Active Substance: FLUTICASONE FUROATE
  60. CLONAZEPAM. [Concomitant]
     Active Substance: CLONAZEPAM
  61. DELSYM [Concomitant]
     Active Substance: DEXTROMETHORPHAN
  62. GABAPENTIN. [Concomitant]
     Active Substance: GABAPENTIN
  63. HYDROCHLOROTHIAZIDE. [Concomitant]
     Active Substance: HYDROCHLOROTHIAZIDE
  64. HYDROCODONE BITARTRATE AND ACETAMINOPHEN [Concomitant]
     Active Substance: ACETAMINOPHEN\HYDROCODONE BITARTRATE
  65. LOPERAMIDE [Concomitant]
     Active Substance: LOPERAMIDE
  66. TRAZODONE [Concomitant]
     Active Substance: TRAZODONE HYDROCHLORIDE
  67. XARELTO [Concomitant]
     Active Substance: RIVAROXABAN
  68. CYCLOBENZAPRINE. [Concomitant]
     Active Substance: CYCLOBENZAPRINE
  69. DOCUSATE SODIUM. [Concomitant]
     Active Substance: DOCUSATE SODIUM
  70. DOXYCYCLINE MONOHYDRATE [Concomitant]
     Active Substance: DOXYCYCLINE
  71. FAMOTIDINE. [Concomitant]
     Active Substance: FAMOTIDINE
  72. NARCAN [Concomitant]
     Active Substance: NALOXONE HYDROCHLORIDE
  73. NEURONTIN [Concomitant]
     Active Substance: GABAPENTIN
  74. OMEPRAZOLE. [Concomitant]
     Active Substance: OMEPRAZOLE
  75. ONDANSETRON [Concomitant]
     Active Substance: ONDANSETRON
  76. ZYRTEC [Concomitant]
     Active Substance: CETIRIZINE HYDROCHLORIDE
  77. TRUVADA [Suspect]
     Active Substance: EMTRICITABINE\TENOFOVIR DISOPROXIL FUMARATE
     Dosage: UNK
     Route: 048
     Dates: start: 2010, end: 2014
  78. ALBUTEROL HFA [Concomitant]
     Active Substance: ALBUTEROL SULFATE
  79. CETIRIZINE HCL [Concomitant]
     Active Substance: CETIRIZINE HYDROCHLORIDE
  80. LISINOPRIL. [Concomitant]
     Active Substance: LISINOPRIL
  81. PRAVASTATIN SODIUM. [Concomitant]
     Active Substance: PRAVASTATIN SODIUM
  82. RAMELTEON [Concomitant]
     Active Substance: RAMELTEON

REACTIONS (6)
  - Chronic kidney disease [Not Recovered/Not Resolved]
  - Anhedonia [Unknown]
  - Emotional distress [Unknown]
  - Loss of personal independence in daily activities [Unknown]
  - Pain [Unknown]
  - Anxiety [Unknown]

NARRATIVE: CASE EVENT DATE: 2012
